FAERS Safety Report 8963955 (Version 1)
Quarter: 2012Q4

REPORT INFORMATION
  Report Type: 
  Country: FR (occurrence: FR)
  Receive Date: 20121214
  Receipt Date: 20121214
  Transmission Date: 20130627
  Serious: Yes (Hospitalization)
  Sender: FDA-Public Use
  Company Number: FR-AMGEN-FRASP2012079800

PATIENT
  Age: 44 Year
  Sex: Male

DRUGS (9)
  1. VECTIBIX [Suspect]
     Indication: PRODUCT USED FOR UNKNOWN INDICATION
     Dosage: 20 mg/ml, (6 mg/kg single dose)
     Route: 042
     Dates: start: 20121029
  2. LEUCOVORIN /00566701/ [Concomitant]
     Dosage: UNK
     Dates: start: 20121029
  3. FLUOROURACIL [Concomitant]
     Dosage: 2800 mg/m2, qd
     Route: 042
     Dates: start: 20121029
  4. IRINOTECAN [Concomitant]
     Dosage: 180 mg/m2, qd
     Route: 042
     Dates: start: 20121029
  5. LEVOFOLINATE [Concomitant]
     Dosage: 200 mg/m2, qd
     Route: 042
     Dates: start: 20121029
  6. EFFERALGAN                         /00020001/ [Concomitant]
     Indication: PAIN
     Dosage: UNK
     Route: 048
     Dates: start: 201204
  7. MOVICOL                            /01625101/ [Concomitant]
     Indication: CONSTIPATION
     Dosage: UNK
     Route: 048
     Dates: start: 201204
  8. XYZALL [Concomitant]
     Dosage: 20 mg, qd (5mg, 4 capelets/d)
     Route: 048
     Dates: start: 201210
  9. TOLEXINE                           /00055701/ [Concomitant]
     Dosage: UNK
     Dates: start: 20121029

REACTIONS (2)
  - Rash pustular [Recovering/Resolving]
  - Pruritus [Recovered/Resolved]
